FAERS Safety Report 10217001 (Version 1)
Quarter: 2014Q2

REPORT INFORMATION
  Report Type: Spontaneous
  Country: US (occurrence: US)
  Receive Date: 20140604
  Receipt Date: 20140604
  Transmission Date: 20141212
  Serious: No
  Sender: FDA-Public Use
  Company Number: US-ASTRAZENECA-2014SE35817

PATIENT
  Age: 57 Year
  Sex: Female
  Weight: 54.4 kg

DRUGS (6)
  1. NEXIUM [Suspect]
     Indication: GASTROOESOPHAGEAL REFLUX DISEASE
     Route: 048
     Dates: start: 2001, end: 2011
  2. PRILOSEC OTC [Suspect]
     Indication: GASTROOESOPHAGEAL REFLUX DISEASE
     Route: 048
     Dates: start: 2009
  3. PRILOSEC OTC [Suspect]
     Indication: GASTROOESOPHAGEAL REFLUX DISEASE
     Dosage: 20.6 MG 2-3 DAILY
     Route: 048
     Dates: start: 201401
  4. BUTALBITAL [Concomitant]
     Indication: MIGRAINE
     Dosage: NOT KNOWN PRN
     Route: 048
  5. AXID [Concomitant]
     Indication: ABDOMINAL DISCOMFORT
     Route: 048
     Dates: start: 2004
  6. VALIUM [Concomitant]
     Indication: SLEEP DISORDER
     Dosage: 1 MG BID PRN
     Route: 048
     Dates: start: 201404

REACTIONS (5)
  - Migraine [Unknown]
  - Gastrooesophageal reflux disease [Unknown]
  - Off label use [Unknown]
  - Intentional product misuse [Unknown]
  - Drug ineffective [Unknown]
